FAERS Safety Report 24058922 (Version 1)
Quarter: 2024Q3

REPORT INFORMATION
  Report Type: Spontaneous
  Country: CA (occurrence: CA)
  Receive Date: 20240708
  Receipt Date: 20240708
  Transmission Date: 20241017
  Serious: Yes (Hospitalization)
  Sender: TEVA
  Company Number: CA-TEVA-VS-3214933

PATIENT
  Sex: Male

DRUGS (3)
  1. PANTOPRAZOLE [Suspect]
     Active Substance: PANTOPRAZOLE
     Indication: Product used for unknown indication
     Route: 048
  2. TRASTUZUMAB [Interacting]
     Active Substance: TRASTUZUMAB
     Indication: Chronic lymphocytic leukaemia
     Route: 042
  3. CALQUENCE [Interacting]
     Active Substance: ACALABRUTINIB
     Indication: Product used for unknown indication
     Route: 048

REACTIONS (2)
  - Ulcer haemorrhage [Unknown]
  - Drug interaction [Unknown]
